FAERS Safety Report 20590824 (Version 4)
Quarter: 2024Q3

REPORT INFORMATION
  Report Type: Spontaneous
  Country: US (occurrence: US)
  Receive Date: 20220314
  Receipt Date: 20240926
  Transmission Date: 20241016
  Serious: No
  Sender: SANOFI AVENTIS
  Company Number: US-SA-SAC20220303001929

PATIENT
  Sex: Female

DRUGS (6)
  1. DUPIXENT [Suspect]
     Active Substance: DUPILUMAB
     Indication: Dermatitis atopic
     Dosage: 300 MG, QOW
     Route: 058
     Dates: start: 20210401
  2. CICLOPIROX [Concomitant]
     Active Substance: CICLOPIROX
     Dosage: 20 MG
  3. PREDNISONE [Concomitant]
     Active Substance: PREDNISONE
     Dosage: 20 MG
  4. ACITRETIN [Concomitant]
     Active Substance: ACITRETIN
     Dosage: UNK
  5. HALOBETASOL [Concomitant]
     Active Substance: HALOBETASOL
     Dosage: UNK
  6. VTAMA [Concomitant]
     Active Substance: TAPINAROF
     Dosage: UNK

REACTIONS (3)
  - Sleep disorder [Not Recovered/Not Resolved]
  - Dermatitis atopic [Not Recovered/Not Resolved]
  - Drug ineffective [Unknown]
